FAERS Safety Report 7434003-X (Version None)
Quarter: 2011Q2

REPORT INFORMATION
  Report Type: 
  Country: None (occurrence: None)
  Receive Date: 20110425
  Receipt Date: 20080513
  Transmission Date: 20111010
  Serious: Yes (Death, Hospitalization, Other)
  Sender: FDA-Public Use
  Company Number: US-BAYER-200826601NA

PATIENT
  Age: 69 Year
  Sex: Female
  Weight: 70.295 kg

DRUGS (27)
  1. LESCOL [Concomitant]
     Dosage: LONG TERM
     Route: 048
  2. TRASYLOL [Suspect]
     Indication: AORTIC VALVE REPLACEMENT
     Dosage: 200 ML, LOADING DOSE
     Route: 042
     Dates: start: 20050511, end: 20050511
  3. TRASYLOL [Suspect]
     Dosage: 50 ML, Q1HR
     Route: 042
     Dates: start: 20050511, end: 20050511
  4. GLUCOPHAGE [Concomitant]
     Dosage: LONG TERM
     Route: 048
  5. NEURONTIN [Concomitant]
     Route: 048
  6. CARDIOPLEGIA [Concomitant]
     Dosage: UNK
     Route: 042
     Dates: start: 20050511
  7. HEPARIN [Concomitant]
     Dosage: 30000 UNK, UNK
     Route: 042
     Dates: start: 20050511
  8. STARLIX [Concomitant]
     Dosage: LONG TERM
     Route: 048
  9. METOPROLOL [Concomitant]
     Dosage: UNK
     Route: 042
     Dates: start: 20050511
  10. TRASYLOL [Suspect]
     Indication: CORONARY ARTERY BYPASS
     Dosage: TEST DOSE
     Route: 042
     Dates: start: 20050511, end: 20050511
  11. PREVACID [Concomitant]
     Dosage: LONG TERM
     Route: 048
  12. PULMICORT [Concomitant]
     Dosage: LONG TERM, INHALATION
  13. FORANE [Concomitant]
     Dosage: ,INHALED, UNK
     Dates: start: 20050511
  14. PAVULON [Concomitant]
     Dosage: UNK
     Route: 042
     Dates: start: 20050511
  15. NOVOLIN [INSULIN] [Concomitant]
     Dosage: CONTINUOUS INFUSION
     Route: 042
     Dates: start: 20050511
  16. LIDOCAINE [Concomitant]
     Dosage: 200 MG CONTINUOUS INFUSION, UNK
     Route: 042
     Dates: start: 20050511
  17. RED BLOOD CELLS [Concomitant]
  18. VERSED [Concomitant]
     Dosage: UNK
     Route: 042
     Dates: start: 20050511
  19. VANCOMYCIN [Concomitant]
     Dosage: 2 G, UNK
     Route: 042
     Dates: start: 20050511
  20. PROTAMINE SULFATE [Concomitant]
     Dosage: UNK
     Route: 042
     Dates: start: 20050511
  21. LEVOPHED [Concomitant]
     Dosage: UNK,CONTINUOUS INFUSION
     Dates: start: 20050511
  22. DOBUTAMINE HCL [Concomitant]
     Dosage: CONTINUOUS INFUSION
     Route: 042
     Dates: start: 20050511
  23. MILRINONE [Concomitant]
     Dosage: UNK
     Route: 042
     Dates: start: 20050511
  24. ULTRAM [Concomitant]
     Dosage: LONG TERM
     Route: 048
  25. SKELAXIN [Concomitant]
     Dosage: LONG TERM
     Route: 048
  26. DIAZEPAM [Concomitant]
     Dosage: 5 MG, UNK
     Dates: start: 20050511
  27. FENTANYL [Concomitant]
     Dosage: UNK,INHALED
     Dates: start: 20050511

REACTIONS (15)
  - MOBILITY DECREASED [None]
  - ILL-DEFINED DISORDER [None]
  - PAIN [None]
  - ANXIETY [None]
  - EMOTIONAL DISTRESS [None]
  - ANHEDONIA [None]
  - DEATH [None]
  - RENAL INJURY [None]
  - RENAL IMPAIRMENT [None]
  - AMNESIA [None]
  - INJURY [None]
  - RENAL FAILURE [None]
  - FEAR [None]
  - DEPRESSION [None]
  - MULTI-ORGAN FAILURE [None]
